FAERS Safety Report 14181897 (Version 1)
Quarter: 2017Q4

REPORT INFORMATION
  Report Type: Spontaneous
  Country: US (occurrence: US)
  Receive Date: 20171113
  Receipt Date: 20171113
  Transmission Date: 20180321
  Serious: Yes (Other)
  Sender: FDA-Public Use
  Company Number: US-ROCHE-2023071

PATIENT
  Sex: Female

DRUGS (10)
  1. GABAPENTINE [Concomitant]
     Active Substance: GABAPENTIN
  2. VENTOLIN [Concomitant]
     Active Substance: ALBUTEROL SULFATE
  3. FLUTICASONE. [Concomitant]
     Active Substance: FLUTICASONE
  4. LOSARTAN. [Concomitant]
     Active Substance: LOSARTAN
  5. OMEPRAZOLE. [Concomitant]
     Active Substance: OMEPRAZOLE
  6. TRIAMCINOLON [Concomitant]
  7. XOLAIR [Suspect]
     Active Substance: OMALIZUMAB
     Indication: ASTHMA
     Route: 058
  8. AMITRIPTYLIN [Concomitant]
     Active Substance: AMITRIPTYLINE
  9. MONTELUKAST [Concomitant]
     Active Substance: MONTELUKAST SODIUM
  10. BUDESONIDE. [Concomitant]
     Active Substance: BUDESONIDE

REACTIONS (2)
  - Hypersensitivity [Not Recovered/Not Resolved]
  - Cough [Not Recovered/Not Resolved]
